FAERS Safety Report 23965680 (Version 2)
Quarter: 2024Q2

REPORT INFORMATION
  Report Type: Spontaneous
  Country: JP (occurrence: JP)
  Receive Date: 20240612
  Receipt Date: 20240625
  Transmission Date: 20240715
  Serious: Yes (Hospitalization, Other)
  Sender: FDA-Public Use
  Company Number: JP-SA-2024SA166718

PATIENT
  Age: 70 Year
  Sex: Male
  Weight: 47.6 kg

DRUGS (3)
  1. PLAVIX [Suspect]
     Active Substance: CLOPIDOGREL BISULFATE
     Indication: Product used for unknown indication
     Route: 048
  2. WARFARIN POTASSIUM [Suspect]
     Active Substance: WARFARIN POTASSIUM
     Indication: Product used for unknown indication
     Route: 048
  3. PREDNISOLONE [Concomitant]
     Active Substance: PREDNISOLONE
     Indication: Pemphigoid
     Route: 048

REACTIONS (12)
  - Aneurysm ruptured [Unknown]
  - Aneurysm [Unknown]
  - Shock haemorrhagic [Unknown]
  - Intra-abdominal haemorrhage [Unknown]
  - Haemorrhagic ascites [Unknown]
  - Haemobilia [Unknown]
  - Abdominal pain upper [Unknown]
  - Coagulopathy [Unknown]
  - Inflammation [Unknown]
  - Platelet count decreased [Recovering/Resolving]
  - Anaemia [Unknown]
  - Hepatic function abnormal [Unknown]
